FAERS Safety Report 5891650-4 (Version None)
Quarter: 2008Q3

REPORT INFORMATION
  Report Type: 
  Country: None (occurrence: None)
  Receive Date: 20080908
  Receipt Date: 20080523
  Transmission Date: 20090109
  Serious: No
  Sender: FDA-Public Use
  Company Number: 002#2#2008-00311

PATIENT
  Age: 79 Year
  Sex: Female
  Weight: 52.1637 kg

DRUGS (4)
  1. NEUPRO [Suspect]
     Indication: PARKINSON'S DISEASE
     Dosage: 6MG/24H,1 IN 1 D, TRANSDERMAL
     Route: 062
     Dates: start: 20070801, end: 20080301
  2. AZILECT [Concomitant]
  3. ULTRAM [Concomitant]
  4. CARBIDOPA AND LEVODOPA [Concomitant]

REACTIONS (3)
  - DYSGEUSIA [None]
  - TREMOR [None]
  - WEIGHT DECREASED [None]
